FAERS Safety Report 5040516-0 (Version None)
Quarter: 2006Q2

REPORT INFORMATION
  Report Type: 
  Country: None (occurrence: None)
  Receive Date: 20060630
  Receipt Date: 20060622
  Transmission Date: 20061013
  Serious: Yes (Hospitalization)
  Sender: FDA-Public Use
  Company Number: US-ABBOTT-06P-163-0336956-00

PATIENT
  Sex: Male

DRUGS (1)
  1. HUMIRA [Suspect]
     Indication: DRUG USE FOR UNKNOWN INDICATION
     Route: 058
     Dates: start: 20050101

REACTIONS (4)
  - GENITAL INFECTION MALE [None]
  - HAEMORRHAGE [None]
  - MALAISE [None]
  - WEIGHT DECREASED [None]
